FAERS Safety Report 20391793 (Version 1)
Quarter: 2022Q1

REPORT INFORMATION
  Report Type: Spontaneous
  Country: JP (occurrence: JP)
  Receive Date: 20220128
  Receipt Date: 20220128
  Transmission Date: 20220423
  Serious: Yes (Hospitalization)
  Sender: FDA-Public Use
  Company Number: JP-JNJFOC-20211146511

PATIENT
  Age: 90 Year
  Sex: Female
  Weight: 32.7 kg

DRUGS (8)
  1. STELARA [Suspect]
     Active Substance: USTEKINUMAB
     Indication: Psoriasis
     Dosage: DOSE UNKNOWN
     Route: 058
  2. MAGNESIUM OXIDE [Concomitant]
     Active Substance: MAGNESIUM OXIDE
     Route: 048
  3. SPIRONOLACTONE [Concomitant]
     Active Substance: SPIRONOLACTONE
     Route: 048
  4. AZOSEMIDE [Concomitant]
     Active Substance: AZOSEMIDE
     Dosage: IN THE MORNING
     Route: 048
  5. SENNOSIDES A AND B [Concomitant]
     Active Substance: SENNOSIDES A AND B
     Dosage: IN THE EVENING
     Route: 048
  6. MAGNESIUM OXIDE [Concomitant]
     Active Substance: MAGNESIUM OXIDE
     Route: 048
  7. NICORANDIL [Concomitant]
     Active Substance: NICORANDIL
     Route: 048
  8. ISOSORBIDE DINITRATE [Concomitant]
     Active Substance: ISOSORBIDE DINITRATE
     Dosage: 1 SHEET
     Route: 062

REACTIONS (1)
  - Cardiac failure acute [Recovering/Resolving]

NARRATIVE: CASE EVENT DATE: 20211101
